FAERS Safety Report 14121965 (Version 5)
Quarter: 2018Q3

REPORT INFORMATION
  Report Type: Report from Study
  Country: CA (occurrence: CA)
  Receive Date: 20171024
  Receipt Date: 20180823
  Transmission Date: 20181010
  Serious: Yes (Death, Hospitalization, Other)
  Sender: FDA-Public Use
  Company Number: PHHY2017CA032926

PATIENT
  Age: 70 Year
  Sex: Female
  Weight: 39.3 kg

DRUGS (9)
  1. CLOPIDOGREL [Concomitant]
     Active Substance: CLOPIDOGREL BISULFATE
     Indication: PRODUCT USED FOR UNKNOWN INDICATION
     Dosage: 75 MG, UNK
     Route: 048
  2. BISOPROLOL [Concomitant]
     Active Substance: BISOPROLOL
     Indication: PRODUCT USED FOR UNKNOWN INDICATION
     Dosage: 5 MG, QD
     Route: 048
     Dates: start: 20160624
  3. ASA [Concomitant]
     Active Substance: ASPIRIN
     Indication: PRODUCT USED FOR UNKNOWN INDICATION
     Dosage: 80 MG, UNK
     Route: 048
     Dates: start: 20151118
  4. ENTRESTO [Suspect]
     Active Substance: SACUBITRIL\VALSARTAN
     Dosage: 100 MG (SACUBITRIL 49 MG/VALSARTAN 51 MG), BID
     Route: 048
     Dates: start: 20170812
  5. FUROSEMIDE. [Concomitant]
     Active Substance: FUROSEMIDE
     Indication: CARDIAC FAILURE
     Dosage: 40 MG, UNK
     Route: 048
     Dates: start: 20150904, end: 20170804
  6. BISOPROLOL [Concomitant]
     Active Substance: BISOPROLOL
     Dosage: 2.5 MG, UNK
     Route: 048
     Dates: start: 20170812
  7. ENTRESTO [Suspect]
     Active Substance: SACUBITRIL\VALSARTAN
     Indication: CARDIAC FAILURE
     Dosage: 50 (SACUBITRIL 24 MG/VALSARTAN 26 MG), BID
     Route: 048
     Dates: start: 20160920, end: 20170804
  8. PRAVASTATIN. [Concomitant]
     Active Substance: PRAVASTATIN
     Indication: PRODUCT USED FOR UNKNOWN INDICATION
     Dosage: 10 MG, UNK
     Route: 048
     Dates: start: 20151118
  9. ALLOPURINOL. [Concomitant]
     Active Substance: ALLOPURINOL
     Indication: GOUT
     Dosage: 100 MG, UNK
     Route: 065

REACTIONS (13)
  - Pulseless electrical activity [Fatal]
  - Nausea [Recovered/Resolved]
  - Blood creatinine increased [Not Recovered/Not Resolved]
  - Hypertensive nephropathy [Unknown]
  - Acute kidney injury [Recovered/Resolved]
  - Chronic kidney disease [Not Recovered/Not Resolved]
  - Peripheral arterial occlusive disease [Not Recovered/Not Resolved]
  - Abdominal pain [Recovered/Resolved with Sequelae]
  - Dementia Alzheimer^s type [Unknown]
  - Condition aggravated [Not Recovered/Not Resolved]
  - Diabetes mellitus inadequate control [Unknown]
  - Delirium [Recovered/Resolved]
  - Blood urea increased [Not Recovered/Not Resolved]

NARRATIVE: CASE EVENT DATE: 20170123
